FAERS Safety Report 8131665-9 (Version None)
Quarter: 2012Q1

REPORT INFORMATION
  Report Type: 
  Country: None (occurrence: None)
  Receive Date: 20120208
  Receipt Date: 20120131
  Transmission Date: 20120608
  Serious: Yes (Other)
  Sender: FDA-Public Use
  Company Number: 2011SP052222

PATIENT
  Sex: Female

DRUGS (5)
  1. PEG-INTRON [Suspect]
     Indication: HEPATITIS C
     Dates: start: 20111107, end: 20111114
  2. PEG-INTRON [Suspect]
     Indication: HEPATITIS C
     Dates: start: 20050101
  3. RIBAVIRIN [Suspect]
     Indication: HEPATITIS C
     Dates: start: 20111107, end: 20111114
  4. RIBAVIRIN [Suspect]
     Indication: HEPATITIS C
     Dates: start: 20050101
  5. TELAPREVIR [Suspect]
     Indication: HEPATITIS C
     Dates: start: 20111107, end: 20111114

REACTIONS (10)
  - PAIN [None]
  - CHILLS [None]
  - DYSSTASIA [None]
  - HEPATIC NEOPLASM MALIGNANT [None]
  - WRIST FRACTURE [None]
  - LOSS OF CONSCIOUSNESS [None]
  - WEIGHT INCREASED [None]
  - HYPERHIDROSIS [None]
  - APHAGIA [None]
  - DYSPNOEA [None]
